FAERS Safety Report 9212802 (Version 3)
Quarter: 2013Q2

REPORT INFORMATION
  Report Type: Spontaneous
  Country: JP (occurrence: JP)
  Receive Date: 20130405
  Receipt Date: 20130423
  Transmission Date: 20140414
  Serious: Yes (Other)
  Sender: FDA-Public Use
  Company Number: JP-009507513-1304JPN000466

PATIENT
  Age: 80 Year
  Sex: Male

DRUGS (5)
  1. DEXAMETHASONE [Suspect]
     Route: 048
  2. FAMOTIDINE [Suspect]
  3. MEROPENEM [Suspect]
     Dosage: UNK
  4. VANCOMYCIN HYDROCHLORIDE [Suspect]
     Dosage: 2000 MG, QD
     Route: 048
  5. [THERAPY UNSPECIFIED] [Suspect]

REACTIONS (1)
  - Clostridium difficile infection [Recovering/Resolving]
